FAERS Safety Report 5131011-9 (Version None)
Quarter: 2006Q4

REPORT INFORMATION
  Report Type: 
  Country: None (occurrence: None)
  Receive Date: 20061019
  Receipt Date: 20060911
  Transmission Date: 20070319
  Serious: Yes (Other)
  Sender: FDA-Public Use
  Company Number: DE-MERCK-0609DEU00042

PATIENT
  Age: 65 Year
  Sex: Male

DRUGS (2)
  1. FOSAMAX [Suspect]
     Indication: OSTEOPOROSIS
     Route: 048
     Dates: end: 20060911
  2. CALCIUM CARBONATE AND CHOLECALCIFEROL [Concomitant]
     Route: 048

REACTIONS (2)
  - APHONIA [None]
  - DYSPHONIA [None]
